FAERS Safety Report 11285163 (Version 1)
Quarter: 2015Q3

REPORT INFORMATION
  Report Type: Spontaneous
  Country: IN (occurrence: IN)
  Receive Date: 20150720
  Receipt Date: 20150720
  Transmission Date: 20151125
  Serious: Yes (Other)
  Sender: FDA-Public Use
  Company Number: IN-MYLANLABS-2015M1023924

PATIENT

DRUGS (11)
  1. ASPIRIN                            /00002701/ [Concomitant]
     Active Substance: ASPIRIN
     Indication: PRODUCT USED FOR UNKNOWN INDICATION
     Route: 065
  2. METOPROLOL [Interacting]
     Active Substance: METOPROLOL
     Indication: ATRIAL FLUTTER
     Route: 065
  3. METFORMIN [Concomitant]
     Active Substance: METFORMIN HYDROCHLORIDE
     Indication: DIABETES MELLITUS
     Route: 048
  4. DILTIAZEM [Interacting]
     Active Substance: DILTIAZEM
     Indication: ATRIAL FLUTTER
     Dosage: 120 ONCE A DAY
     Route: 065
  5. FLECAINIDE [Interacting]
     Active Substance: FLECAINIDE
     Indication: ATRIAL FLUTTER
     Dosage: 100MG MORNING AND 50 MG EVENING
     Route: 065
  6. ATENOLOL. [Concomitant]
     Active Substance: ATENOLOL
     Indication: ATRIAL FLUTTER
     Dosage: 20MG
     Route: 065
  7. AMIODARONE [Suspect]
     Active Substance: AMIODARONE
     Indication: ATRIAL FLUTTER
     Route: 048
  8. GLIMEPIRIDE. [Concomitant]
     Active Substance: GLIMEPIRIDE
     Indication: DIABETES MELLITUS
     Dosage: BEFORE BREAKFAST
     Route: 065
  9. ATORVASTATIN [Concomitant]
     Active Substance: ATORVASTATIN
     Indication: PRODUCT USED FOR UNKNOWN INDICATION
     Dosage: 10MG BED TIME
     Route: 065
  10. PROCAINAMIDE [Concomitant]
     Active Substance: PROCAINAMIDE HYDROCHLORIDE
     Indication: ATRIAL FLUTTER
     Dosage: 20MG
     Route: 065
  11. LEVOTHYROXINE SODIUM. [Concomitant]
     Active Substance: LEVOTHYROXINE SODIUM
     Indication: PRODUCT USED FOR UNKNOWN INDICATION
     Dosage: EMPTY STOMACH
     Route: 065

REACTIONS (4)
  - Drug interaction [Recovering/Resolving]
  - Medication error [Recovering/Resolving]
  - Atrioventricular block first degree [Recovering/Resolving]
  - Bradycardia [Recovering/Resolving]
